FAERS Safety Report 6384626-4 (Version None)
Quarter: 2009Q4

REPORT INFORMATION
  Report Type: 
  Country: None (occurrence: None)
  Receive Date: 20091001
  Receipt Date: 20090922
  Transmission Date: 20100525
  Serious: Yes (Other)
  Sender: FDA-Public Use
  Company Number: PHEH2009US07958

PATIENT
  Sex: Male
  Weight: 44.8 kg

DRUGS (8)
  1. EXJADE [Suspect]
     Dosage: 125 MG, QD
     Route: 048
     Dates: start: 20070201, end: 20070801
  2. HYDROXYUREA [Concomitant]
     Indication: SICKLE CELL ANAEMIA
     Dosage: 1000 MG, QD
     Route: 048
  3. FOLIC ACID [Concomitant]
     Indication: SICKLE CELL ANAEMIA
     Dosage: 1 MG, QD
     Route: 048
  4. TYLENOL W/ CODEINE NO. 3 [Concomitant]
     Indication: SICKLE CELL ANAEMIA
     Dosage: ONE TABLET PRN
     Route: 048
  5. TYLENOL W/ CODEINE NO. 3 [Concomitant]
     Indication: PAIN
  6. IBUPROFEN [Concomitant]
     Indication: SICKLE CELL ANAEMIA
     Dosage: ONE TAB PRN
     Route: 048
  7. IBUPROFEN [Concomitant]
     Indication: PAIN
  8. ASACOL [Concomitant]
     Indication: SICKLE CELL ANAEMIA
     Dosage: 800 MG, BID
     Route: 048

REACTIONS (4)
  - CONDITION AGGRAVATED [None]
  - DIARRHOEA HAEMORRHAGIC [None]
  - HAEMATOCHEZIA [None]
  - INFLAMMATORY BOWEL DISEASE [None]
